FAERS Safety Report 7622348 (Version 15)
Quarter: 2013Q4

REPORT INFORMATION
  Report Type: Report from Study
  Country: FR (occurrence: FR)
  Receive Date: 20101008
  Receipt Date: 20131003
  Transmission Date: 20140711
  Serious: Yes (Life-Threatening, Hospitalization)
  Sender: FDA-Public Use
  Company Number: FR-ROCHE-727852

PATIENT
  Age: 27 Year
  Sex: Female
  Weight: 60 kg

DRUGS (8)
  1. BEVACIZUMAB [Suspect]
     Indication: HER-2 POSITIVE BREAST CANCER
     Dosage: DOSE LEVEL:15 MG/KG. DATE OF LAST DOSE PRIOR TO SAE:10 SEPTEMBER 2010. DOSE FORM:VIALS
     Route: 042
  2. TRASTUZUMAB [Suspect]
     Indication: BREAST CANCER
     Dosage: DOSE LEVEL:6 MG/KG. DATE OF LAST DOSE PRIOR TO SAE:10 SEPTEMBER 2010. DOSE FORM:VIALS
     Route: 042
  3. DOCETAXEL [Suspect]
     Indication: HER-2 POSITIVE BREAST CANCER
     Dosage: DOSE LEVEL:75 MG/M2.DATE OF LAST DOSE PRIOR TO SAE:10 SEPTEMBER 2010.DOSE FORM:VIALS.
     Route: 042
  4. DOCETAXEL [Suspect]
     Dosage: DOSE REDUCED BY ONE DOSE LEVEL. DOSE LEVEL:60 MG/M2
     Route: 042
  5. CARBOPLATIN [Suspect]
     Indication: HER-2 POSITIVE BREAST CANCER
     Dosage: DOSE LEVEL:6 AUC. DATE OF LAST DOSE PRIOR TO SAE:10 SEPTEMBER 2010. DOSE FORM:VIALS.
     Route: 042
     Dates: start: 20100618
  6. CARBOPLATIN [Suspect]
     Dosage: DOSE REDUCED BY ONE DOSE LEVEL. DOSE LEVEL:5 AUC
     Route: 042
  7. ACICLOVIR [Concomitant]
     Route: 065
     Dates: start: 20100916, end: 20100925
  8. OXYCODONE [Concomitant]
     Route: 065
     Dates: start: 20101125, end: 20101213

REACTIONS (8)
  - Lipase increased [Recovered/Resolved]
  - Hepatobiliary disease [Recovered/Resolved]
  - Blood creatinine increased [Recovered/Resolved]
  - Torsade de pointes [Recovered/Resolved]
  - Ventricular dysfunction [Recovered/Resolved]
  - Colitis [Recovered/Resolved]
  - Febrile neutropenia [Recovered/Resolved]
  - Nausea [Recovered/Resolved]
